FAERS Safety Report 5531372-2 (Version None)
Quarter: 2007Q4

REPORT INFORMATION
  Report Type: 
  Country: None (occurrence: None)
  Receive Date: 20071128
  Receipt Date: 20071115
  Transmission Date: 20080405
  Serious: Yes (Death)
  Sender: FDA-Public Use
  Company Number: GXKR2007CH09853

PATIENT
  Age: 78 Year
  Sex: Female
  Weight: 91 kg

DRUGS (10)
  1. METFIN (NGX)(METFORMIN) UNKNOWN, 850MG [Suspect]
     Indication: DIABETES MELLITUS
     Dosage: 1 DF, BID, ORAL
     Route: 048
     Dates: end: 20060905
  2. INSULIN MIXTARD ^NOVO NORDISK^(INSULIN HUMAN) VIAL [Suspect]
     Indication: DIABETES MELLITUS
     Dosage: 30 UNITS, SUBCUTANEOUS
     Route: 058
     Dates: start: 20060905, end: 20060905
  3. PIOGLITAZONE [Suspect]
     Indication: DIABETES MELLITUS
     Dosage: 1 DF, QD, ORAL
     Route: 048
     Dates: end: 20060905
  4. BELOC ZOK(METOPROLOL SUCCINATE) SLOW RELEASE [Suspect]
     Dosage: 1 DF, QD, ORAL
     Route: 048
     Dates: end: 20060905
  5. COVERSUM COMBI(INDAPAMIDE, PERINDOPRIL ERBBUMINE) TABLET, 1.25/4MG [Suspect]
     Dosage: 1 DF, QD, ORAL
     Route: 048
     Dates: end: 20060905
  6. ASPIRIN [Suspect]
     Dosage: 1 DF, QD, ORAL
     Route: 048
  7. INSULIN MIXTARD HUMAN (INSULIN HUMAN, INSULIN HUMAN INJECTION, ISOPHAN [Concomitant]
  8. TORSEMIDE [Concomitant]
  9. ATORVASTATIN (ATORVASTATIN) COATED TABLET [Concomitant]
  10. AGOPTON (LANSOPRAZOLE) CAPSULE, 15 MG [Concomitant]

REACTIONS (4)
  - HYPOGLYCAEMIA [None]
  - INCORRECT DOSE ADMINISTERED [None]
  - MEDICATION ERROR [None]
  - RESUSCITATION [None]
